FAERS Safety Report 8342994 (Version 2)
Quarter: 2013Q2

REPORT INFORMATION
  Report Type: Spontaneous
  Country: US (occurrence: None)
  Receive Date: 20111202
  Receipt Date: 20121203
  Transmission Date: 20140414
  Serious: Yes (Hospitalization)
  Sender: FDA-Public Use
  Company Number: 2011SP040939

PATIENT
  Age: 26 Year
  Sex: Female
  Weight: 88.9 kg

DRUGS (1)
  1. NUVARING [Suspect]
     Indication: PRODUCT USED FOR UNKNOWN INDICATION
     Route: 067
     Dates: start: 20071222

REACTIONS (4)
  - DEEP VEIN THROMBOSIS [None]
  - Drug hypersensitivity [None]
  - Vulvovaginal mycotic infection [None]
  - Cystitis [None]
